FAERS Safety Report 4457329-0 (Version None)
Quarter: 2004Q3

REPORT INFORMATION
  Report Type: 
  Country: None (occurrence: None)
  Receive Date: 20040922
  Receipt Date: 20040902
  Transmission Date: 20050211
  Serious: Yes (Other)
  Sender: FDA-Public Use
  Company Number: USA040977299

PATIENT
  Age: 33 Year
  Sex: Male

DRUGS (3)
  1. STRATTERA [Suspect]
     Indication: ATTENTION DEFICIT/HYPERACTIVITY DISORDER
     Dosage: 40 MG/1 DAY
     Dates: start: 20040401, end: 20040701
  2. OLUX (CLOBETASOL PROPIONATE) [Concomitant]
  3. RITALIN [Concomitant]

REACTIONS (3)
  - DYSGEUSIA [None]
  - FEELING JITTERY [None]
  - NEPHROLITHIASIS [None]
